FAERS Safety Report 8333487-2 (Version None)
Quarter: 2012Q2

REPORT INFORMATION
  Report Type: 
  Country: None (occurrence: None)
  Receive Date: 20120503
  Receipt Date: 20101105
  Transmission Date: 20120825
  Serious: No
  Sender: FDA-Public Use
  Company Number: US-TEVA-2010005787

PATIENT
  Sex: Female
  Weight: 78.996 kg

DRUGS (5)
  1. VITAMIN TAB [Concomitant]
  2. FISH OIL [Concomitant]
  3. PEPCID [Concomitant]
  4. HYDROXYCLOROQUINE [Concomitant]
  5. NUVIGIL [Suspect]
     Indication: NARCOLEPSY
     Route: 048
     Dates: start: 20090101, end: 20090101

REACTIONS (1)
  - HEADACHE [None]
